FAERS Safety Report 20056404 (Version 8)
Quarter: 2023Q1

REPORT INFORMATION
  Report Type: Spontaneous
  Country: JP (occurrence: JP)
  Receive Date: 20211111
  Receipt Date: 20230223
  Transmission Date: 20230417
  Serious: Yes (Hospitalization, Other)
  Sender: FDA-Public Use
  Company Number: JP-BRISTOL-MYERS SQUIBB COMPANY-BMS-2021-117741

PATIENT
  Age: 50 Year
  Sex: Female

DRUGS (7)
  1. YERVOY [Suspect]
     Active Substance: IPILIMUMAB
     Indication: Non-small cell lung cancer
     Dosage: 1MG/KG
     Route: 041
     Dates: start: 20210112, end: 20210302
  2. YERVOY [Suspect]
     Active Substance: IPILIMUMAB
     Indication: Prophylaxis
     Dosage: 1MG/KG
     Route: 041
     Dates: start: 20210302
  3. YERVOY [Suspect]
     Active Substance: IPILIMUMAB
     Indication: Brain cancer metastatic
  4. OPDIVO [Suspect]
     Active Substance: NIVOLUMAB
     Indication: Non-small cell lung cancer
     Route: 041
     Dates: start: 20210112, end: 20210302
  5. OPDIVO [Suspect]
     Active Substance: NIVOLUMAB
     Indication: Non-small cell lung cancer recurrent
     Route: 041
     Dates: start: 20210624
  6. OPDIVO [Suspect]
     Active Substance: NIVOLUMAB
     Indication: Brain cancer metastatic
     Route: 041
     Dates: start: 20210302
  7. SULFAMETHOXAZOLE\TRIMETHOPRIM [Concomitant]
     Active Substance: SULFAMETHOXAZOLE\TRIMETHOPRIM
     Indication: Prophylaxis

REACTIONS (3)
  - Immune-mediated hepatitis [Recovering/Resolving]
  - Pneumocystis jirovecii pneumonia [Unknown]
  - Drug eruption [Unknown]

NARRATIVE: CASE EVENT DATE: 20210125
